FAERS Safety Report 7067877-5 (Version None)
Quarter: 2010Q4

REPORT INFORMATION
  Report Type: 
  Country: None (occurrence: None)
  Receive Date: 20101028
  Receipt Date: 20101015
  Transmission Date: 20110411
  Serious: Yes (Hospitalization)
  Sender: FDA-Public Use
  Company Number: DE-ELI_LILLY_AND_COMPANY-DE201009001988

PATIENT
  Sex: Male

DRUGS (16)
  1. CYMBALTA [Suspect]
     Indication: ANXIETY
     Dosage: UNK, UNKNOWN
  2. CYMBALTA [Suspect]
     Dosage: 120 MG, UNK
     Route: 048
  3. CYMBALTA [Suspect]
     Dosage: 60 MG, UNK
     Route: 048
     Dates: start: 20100907
  4. CYMBALTA [Suspect]
     Dosage: 90 MG, DAILY (1/D)
  5. ZYPREXA [Suspect]
     Dosage: 5 MG, UNK
     Route: 048
  6. ZYPREXA [Suspect]
     Dosage: 10 MG, UNK
     Dates: start: 20100907
  7. ZYPREXA [Suspect]
     Dosage: 20 MG, UNK
  8. ZYPREXA [Suspect]
     Dosage: 10 MG, EACH EVENING
  9. REMERGIL [Concomitant]
     Dosage: 15 MG, EACH EVENING
  10. CIPRALEX [Concomitant]
  11. LYRICA [Concomitant]
     Dosage: 75 MG, 2/D
  12. ASPIRIN [Concomitant]
     Dosage: 100 MG, EACH EVENING
  13. SIMVAHEXAL [Concomitant]
     Dosage: 40 MG, EACH EVENING
  14. CARMEN [Concomitant]
     Dosage: 10 MG, EACH MORNING
  15. CARMEN [Concomitant]
     Dosage: 20 MG, EACH EVENING
  16. ATACAND [Concomitant]
     Dosage: 8 MG, EACH MORNING

REACTIONS (6)
  - ELEVATED MOOD [None]
  - HYPOMANIA [None]
  - PSYCHOMOTOR HYPERACTIVITY [None]
  - RESTLESSNESS [None]
  - SLEEP DISORDER [None]
  - TACHYPHRENIA [None]
